FAERS Safety Report 6463950-0 (Version None)
Quarter: 2009Q4

REPORT INFORMATION
  Report Type: 
  Country: None (occurrence: None)
  Receive Date: 20091130
  Receipt Date: 20091130
  Transmission Date: 20100525
  Serious: Yes (Hospitalization)
  Sender: FDA-Public Use
  Company Number: None

PATIENT
  Age: 60 Year
  Sex: Male
  Weight: 100.2 kg

DRUGS (1)
  1. SCOPOLAMINE [Suspect]
     Indication: CATARACT OPERATION
     Dosage: 1 DROPS BID EYE
     Route: 031
     Dates: start: 20090526, end: 20090603

REACTIONS (4)
  - AGITATION [None]
  - DELIRIUM [None]
  - DELUSION [None]
  - PSYCHOTIC DISORDER [None]
